FAERS Safety Report 17984742 (Version 1)
Quarter: 2020Q3

REPORT INFORMATION
  Report Type: Report from Study
  Country: MX (occurrence: MX)
  Receive Date: 20200706
  Receipt Date: 20200706
  Transmission Date: 20201103
  Serious: Yes (Other)
  Sender: FDA-Public Use
  Company Number: MX-DSJP-DSU-2020-119257

PATIENT

DRUGS (4)
  1. OLMESARTAN AMLODIPINE HYDROCHLOROTHIAZIDE [Suspect]
     Active Substance: AMLODIPINE\HYDROCHLOROTHIAZIDE\OLMESARTAN
     Indication: HYPERTENSION
     Dosage: 1 TAB IN MORNING, 1 IN EVENING, QD
     Route: 048
  2. OLMESARTAN AMLODIPINE HYDROCHLOROTHIAZIDE [Suspect]
     Active Substance: AMLODIPINE\HYDROCHLOROTHIAZIDE\OLMESARTAN
     Dosage: 1 TAB IN MORNING, QD
     Route: 048
     Dates: start: 2020
  3. LOPRESOR                           /00376902/ [Suspect]
     Active Substance: METOPROLOL TARTRATE
     Indication: HYPERTENSION
     Dosage: UNK
     Route: 048
  4. PRIMIDONE. [Suspect]
     Active Substance: PRIMIDONE
     Indication: TREMOR
     Dosage: UNK
     Route: 048

REACTIONS (3)
  - Product prescribing issue [Unknown]
  - Drug ineffective [Unknown]
  - Hypertension [Unknown]
